FAERS Safety Report 13054854 (Version 2)
Quarter: 2017Q1

REPORT INFORMATION
  Report Type: Spontaneous
  Country: US (occurrence: US)
  Receive Date: 20161222
  Receipt Date: 20170106
  Transmission Date: 20170428
  Serious: Yes (Hospitalization)
  Sender: FDA-Public Use
  Company Number: US-PFIZER INC-2016543534

PATIENT
  Age: 66 Year
  Sex: Male
  Weight: 71 kg

DRUGS (3)
  1. INFED [Concomitant]
     Active Substance: IRON DEXTRAN
     Indication: RENAL CANCER STAGE IV
     Dosage: UNK
     Dates: start: 20161117
  2. SUTENT [Suspect]
     Active Substance: SUNITINIB MALATE
     Indication: METASTATIC RENAL CELL CARCINOMA
     Dosage: 37.5 MG, CYCLIC (DAILY FOR 28 DAYS ON THEN 14 DAYS OFF)
     Dates: start: 20161201, end: 20161228
  3. TRAMADOL. [Concomitant]
     Active Substance: TRAMADOL
     Dosage: 50 MG, 4X/DAY (Q6 HOURS (QID))
     Route: 048
     Dates: start: 20161110

REACTIONS (8)
  - Skin lesion [Unknown]
  - Skin exfoliation [Unknown]
  - Blister [Unknown]
  - Dry skin [Unknown]
  - Stomatitis [Unknown]
  - Jaundice [Unknown]
  - Confusional state [Unknown]
  - Rash [Unknown]

NARRATIVE: CASE EVENT DATE: 201612
